FAERS Safety Report 5301979-6 (Version None)
Quarter: 2007Q2

REPORT INFORMATION
  Report Type: 
  Country: None (occurrence: None)
  Receive Date: 20070419
  Receipt Date: 20070411
  Transmission Date: 20071010
  Serious: Yes (Hospitalization)
  Sender: FDA-Public Use
  Company Number: SE-AVENTIS-200712141GDDC

PATIENT
  Sex: Male

DRUGS (2)
  1. LANTUS [Suspect]
     Route: 058
  2. OPTIPEN (INSULIN PUMP) [Suspect]

REACTIONS (7)
  - CARDIAC ARREST [None]
  - HYPERGLYCAEMIA [None]
  - KETOACIDOSIS [None]
  - NAUSEA [None]
  - PHARMACEUTICAL PRODUCT COMPLAINT [None]
  - PNEUMONIA [None]
  - VOMITING [None]
